FAERS Safety Report 21011641 (Version 2)
Quarter: 2022Q3

REPORT INFORMATION
  Report Type: Report from Study
  Country: BR (occurrence: BR)
  Receive Date: 20220627
  Receipt Date: 20220701
  Transmission Date: 20221026
  Serious: Yes (Other)
  Sender: FDA-Public Use
  Company Number: BR-NOVARTISPH-NVSC2022BR145020

PATIENT
  Age: 89 Year
  Sex: Female

DRUGS (11)
  1. EXELON [Suspect]
     Active Substance: RIVASTIGMINE TARTRATE
     Indication: Dementia Alzheimer^s type
     Dosage: 9.5 MG, QD (PATCH 10), 18 MG RIVASTIGMINE BASE)
     Route: 062
     Dates: start: 20220110
  2. RISEDRONATE SODIUM [Concomitant]
     Active Substance: RISEDRONATE SODIUM
     Indication: Osteoporosis
     Dosage: UNK
     Route: 065
  3. MEMANTINE [Concomitant]
     Active Substance: MEMANTINE
     Indication: Dementia Alzheimer^s type
     Dosage: UNK
     Route: 048
  4. EXODUS [Concomitant]
     Indication: Depression
     Dosage: UNK
     Route: 048
  5. DIOSMIN [Concomitant]
     Active Substance: DIOSMIN
     Indication: Cardiovascular insufficiency
     Dosage: SACHET
     Route: 065
  6. SIMVASTATIN [Concomitant]
     Active Substance: SIMVASTATIN
     Indication: Blood cholesterol abnormal
     Dosage: 20 UNK
     Route: 065
  7. LOSARTAN [Concomitant]
     Active Substance: LOSARTAN
     Indication: Hypertension
     Dosage: UNK
     Route: 065
  8. QUETIAPINE [Concomitant]
     Active Substance: QUETIAPINE
     Indication: Sleep disorder
     Dosage: UNK
     Route: 065
  9. ASPIRIN\DIHYDROXYALUMINUM AMINOACETATE ANHYDROUS\MAGNESIUM CARBONATE [Concomitant]
     Active Substance: ASPIRIN\DIHYDROXYALUMINUM AMINOACETATE ANHYDROUS\MAGNESIUM CARBONATE
     Indication: Coagulopathy
     Dosage: 100 UNK
     Route: 065
  10. CALDEROL [Concomitant]
     Active Substance: CALCIFEDIOL
     Indication: Blood calcium abnormal
     Dosage: UNK
     Route: 065
  11. COLLAGEN [Concomitant]
     Active Substance: COLLAGEN
     Indication: Osteopenia
     Dosage: UNK, (POWDER)
     Route: 065

REACTIONS (3)
  - Thrombosis [Unknown]
  - Application site pruritus [Unknown]
  - Application site erythema [Unknown]

NARRATIVE: CASE EVENT DATE: 20220601
